FAERS Safety Report 4795055-9 (Version None)
Quarter: 2005Q4

REPORT INFORMATION
  Report Type: 
  Country: None (occurrence: None)
  Receive Date: 20051006
  Receipt Date: 20050923
  Transmission Date: 20060501
  Serious: Yes (Hospitalization)
  Sender: FDA-Public Use
  Company Number: 2005133830

PATIENT
  Age: 50 Year
  Sex: Female

DRUGS (12)
  1. ATORVASTATIN CALCIUM [Suspect]
     Indication: BLOOD CHOLESTEROL
     Dosage: 80 MG
  2. EZETIMIBE (EZETIMIBE) [Suspect]
     Indication: BLOOD CHOLESTEROL
     Dosage: 10 MG
  3. FUROSEMIDE [Concomitant]
  4. ALL OTHER THERAPEUTIC PRODUCTS (ALL OTHER THERAPEUTIC PRODUCTS) [Concomitant]
  5. DILTIAZEM [Concomitant]
  6. DICLOFENAC SODIUM [Concomitant]
  7. ACETAMINOPHEN [Concomitant]
  8. ATENOLOL [Concomitant]
  9. IBUPROFEN [Concomitant]
  10. CLOPIDOGREL BISULFATE [Concomitant]
  11. THYROXINE (LEVOTHYROXINE) [Concomitant]
  12. LACTULOSE [Concomitant]

REACTIONS (7)
  - ABDOMINAL PAIN UPPER [None]
  - ABDOMINAL TENDERNESS [None]
  - AUTOIMMUNE HEPATITIS [None]
  - DYSPEPSIA [None]
  - NAUSEA [None]
  - PANCREATIC DISORDER [None]
  - VOMITING [None]
